FAERS Safety Report 15510018 (Version 1)
Quarter: 2018Q4

REPORT INFORMATION
  Report Type: Spontaneous
  Country: US (occurrence: US)
  Receive Date: 20181016
  Receipt Date: 20181016
  Transmission Date: 20190205
  Serious: No
  Sender: FDA-Public Use
  Company Number: US-AMGEN-USASP2018049807

PATIENT
  Age: 78 Year
  Sex: Female

DRUGS (3)
  1. CARBOPLATIN. [Concomitant]
     Active Substance: CARBOPLATIN
     Indication: OVARIAN CANCER
     Dosage: UNK UNK, Q3WK (DAY 1 OF A 21 DAY CYCLE)
     Dates: start: 201803
  2. NEULASTA [Suspect]
     Active Substance: PEGFILGRASTIM
     Indication: PRODUCT USED FOR UNKNOWN INDICATION
     Dosage: UNK UNK, Q3WK (DAY 1 OF A 21 DAY CYCLE)
     Route: 065
     Dates: start: 201803
  3. TAXOL [Concomitant]
     Active Substance: PACLITAXEL
     Indication: OVARIAN CANCER
     Dosage: UNK UNK, Q3WK (DAY 1 OF A 21 DAY CYCLE)
     Dates: start: 201803

REACTIONS (2)
  - Incorrect disposal of product [Unknown]
  - Bone pain [Unknown]

NARRATIVE: CASE EVENT DATE: 201803
